FAERS Safety Report 6015379-7 (Version None)
Quarter: 2008Q4

REPORT INFORMATION
  Report Type: 
  Country: None (occurrence: None)
  Receive Date: 20081222
  Receipt Date: 20081215
  Transmission Date: 20090506
  Serious: Yes (Hospitalization)
  Sender: FDA-Public Use
  Company Number: NL-BIOGENIDEC-2008BI033875

PATIENT
  Age: 37 Year
  Sex: Female

DRUGS (2)
  1. AVONEX [Suspect]
     Indication: MULTIPLE SCLEROSIS
     Route: 030
     Dates: start: 20080716
  2. CONTRACEPTIVE PILL [Concomitant]
     Indication: CONTRACEPTION

REACTIONS (2)
  - HEPATIC NEOPLASM [None]
  - THROMBOSIS [None]
